FAERS Safety Report 6165395-X (Version None)
Quarter: 2009Q2

REPORT INFORMATION
  Report Type: 
  Country: None (occurrence: None)
  Receive Date: 20090423
  Receipt Date: 20090416
  Transmission Date: 20091009
  Serious: Yes (Other)
  Sender: FDA-Public Use
  Company Number: US-PFIZER INC-2009199211

PATIENT
  Sex: Female
  Weight: 86 kg

DRUGS (5)
  1. PROVERA [Suspect]
     Indication: HORMONE REPLACEMENT THERAPY
     Dosage: UNK
     Dates: start: 19931001, end: 19970201
  2. PREMARIN [Suspect]
     Indication: HORMONE REPLACEMENT THERAPY
     Dosage: UNK
     Dates: start: 19931001, end: 19970201
  3. PREMARIN [Suspect]
     Indication: MENORRHAGIA
  4. PREMPRO [Suspect]
     Indication: HORMONE REPLACEMENT THERAPY
     Dosage: UNK
     Dates: start: 19970201, end: 20020201
  5. PREMPRO [Suspect]
     Indication: MENORRHAGIA

REACTIONS (1)
  - OVARIAN CANCER [None]
